FAERS Safety Report 10178236 (Version 1)
Quarter: 2014Q2

REPORT INFORMATION
  Report Type: Spontaneous
  Country: US (occurrence: None)
  Receive Date: 20140516
  Receipt Date: 20140516
  Transmission Date: 20141212
  Serious: Yes (Life-Threatening)
  Sender: FDA-Public Use
  Company Number: None

PATIENT
  Age: 41 Year
  Sex: Female
  Weight: 72.58 kg

DRUGS (1)
  1. DIVALPROEX  SODIUM [Suspect]
     Indication: BIPOLAR DISORDER
     Dosage: 1000 MG ONCE AT NIGHT ??MAY 1 PREST TIME
     Route: 048

REACTIONS (4)
  - Product substitution issue [None]
  - Depression [None]
  - Feeling of despair [None]
  - Feeling abnormal [None]
